FAERS Safety Report 8019433-X (Version None)
Quarter: 2012Q1

REPORT INFORMATION
  Report Type: 
  Country: None (occurrence: None)
  Receive Date: 20120103
  Receipt Date: 20111228
  Transmission Date: 20120608
  Serious: Yes (Other)
  Sender: FDA-Public Use
  Company Number: PHHO2011US021674

PATIENT

DRUGS (2)
  1. AFINITOR [Suspect]
     Indication: PROSTATE CANCER METASTATIC
     Dosage: UNK
  2. CARBOPLATIN [Suspect]
     Indication: PROSTATE CANCER METASTATIC
     Dosage: UNK

REACTIONS (2)
  - RASH [None]
  - SKIN EXFOLIATION [None]
